FAERS Safety Report 10792382 (Version 1)
Quarter: 2015Q1

REPORT INFORMATION
  Report Type: Spontaneous
  Country: CH (occurrence: CH)
  Receive Date: 20150213
  Receipt Date: 20150213
  Transmission Date: 20150721
  Serious: Yes (Other)
  Sender: FDA-Public Use
  Company Number: CH-TEVA-539904ISR

PATIENT
  Sex: Female

DRUGS (6)
  1. FLUOROURACIL. [Suspect]
     Active Substance: FLUOROURACIL
     Indication: METASTATIC UTERINE CANCER
     Route: 065
  2. TOPOTECAN [Concomitant]
     Active Substance: TOPOTECAN\TOPOTECAN HYDROCHLORIDE
     Indication: METASTATIC UTERINE CANCER
     Route: 065
  3. PACLITAXEL. [Suspect]
     Active Substance: PACLITAXEL
     Indication: METASTATIC UTERINE CANCER
     Route: 065
  4. AVASTIN [Concomitant]
     Active Substance: BEVACIZUMAB
     Indication: METASTATIC UTERINE CANCER
     Route: 065
  5. CISPLATIN. [Suspect]
     Active Substance: CISPLATIN
     Indication: METASTATIC UTERINE CANCER
     Route: 065
  6. NAB-PACLITAXEL [Concomitant]
     Active Substance: PACLITAXEL
     Indication: METASTATIC UTERINE CANCER
     Route: 065

REACTIONS (2)
  - Hepatomegaly [Not Recovered/Not Resolved]
  - Neoplasm progression [Not Recovered/Not Resolved]
